FAERS Safety Report 12080739 (Version 2)
Quarter: 2016Q2

REPORT INFORMATION
  Report Type: Report from Study
  Country: US (occurrence: US)
  Receive Date: 20160216
  Receipt Date: 20160526
  Transmission Date: 20160815
  Serious: Yes (Hospitalization)
  Sender: FDA-Public Use
  Company Number: US-JNJFOC-20160201192

PATIENT
  Age: 53 Year
  Sex: Female
  Weight: 63.4 kg

DRUGS (2)
  1. TYLENOL EXTRA STRENGTH [Suspect]
     Active Substance: ACETAMINOPHEN
     Indication: PRODUCT USED FOR UNKNOWN INDICATION
     Dosage: 143 TABLETS
     Route: 048
     Dates: start: 201508
  2. OLANZAPINE. [Concomitant]
     Active Substance: OLANZAPINE
     Indication: PRODUCT USED FOR UNKNOWN INDICATION
     Route: 065

REACTIONS (7)
  - Aspartate aminotransferase increased [Recovered/Resolved]
  - Prothrombin time prolonged [Recovered/Resolved]
  - Alanine aminotransferase increased [Recovered/Resolved]
  - Overdose [Recovered/Resolved]
  - Abdominal pain [Recovered/Resolved]
  - Suicide attempt [Recovered/Resolved]
  - Vomiting [Recovered/Resolved]

NARRATIVE: CASE EVENT DATE: 201508
